FAERS Safety Report 8429320-0 (Version None)
Quarter: 2012Q2

REPORT INFORMATION
  Report Type: 
  Country: None (occurrence: None)
  Receive Date: 20120612
  Receipt Date: 20120608
  Transmission Date: 20120825
  Serious: Yes (Death, Other)
  Sender: FDA-Public Use
  Company Number: PHHY2012IN049737

PATIENT
  Age: 58 Year
  Sex: Male

DRUGS (1)
  1. SEBIVO [Suspect]
     Dosage: 600MG
     Route: 048

REACTIONS (5)
  - TOOTHACHE [None]
  - DEATH [None]
  - PYREXIA [None]
  - VOMITING [None]
  - ALLERGIC COUGH [None]
